FAERS Safety Report 24731498 (Version 1)
Quarter: 2024Q4

REPORT INFORMATION
  Report Type: Spontaneous
  Country: VN (occurrence: VN)
  Receive Date: 20241213
  Receipt Date: 20241213
  Transmission Date: 20250115
  Serious: Yes (Life-Threatening, Hospitalization)
  Sender: MYLAN
  Company Number: VN-MYLANLABS-2024M1112680

PATIENT
  Age: 11 Year
  Sex: Male

DRUGS (8)
  1. VANCOMYCIN [Suspect]
     Active Substance: VANCOMYCIN
     Indication: Psoas abscess
     Dosage: 60 MILLIGRAM/KILOGRAM, QD (DIVIDED EVERY 6 HOURS)
     Route: 065
  2. VANCOMYCIN [Suspect]
     Active Substance: VANCOMYCIN
     Indication: Staphylococcal infection
  3. METRONIDAZOLE [Suspect]
     Active Substance: METRONIDAZOLE
     Indication: Psoas abscess
     Dosage: 30 MILLIGRAM/KILOGRAM, QD (DIVIDED EVERY 6 HOURS)
     Route: 065
  4. METRONIDAZOLE [Suspect]
     Active Substance: METRONIDAZOLE
     Indication: Staphylococcal infection
  5. CLINDAMYCIN [Concomitant]
     Active Substance: CLINDAMYCIN
     Indication: Psoas abscess
     Dosage: 600 MILLIGRAM, TID, THRICE DAILY
     Route: 065
  6. CLINDAMYCIN [Concomitant]
     Active Substance: CLINDAMYCIN
     Indication: Staphylococcal infection
  7. OXACILLIN [Concomitant]
     Active Substance: OXACILLIN SODIUM
     Indication: Psoas abscess
     Dosage: 200 MILLIGRAM/KILOGRAM, QD (DIVIDED EVERY 6 HOURS)
     Route: 065
  8. OXACILLIN [Concomitant]
     Active Substance: OXACILLIN SODIUM
     Indication: Staphylococcal infection

REACTIONS (1)
  - Drug ineffective [Unknown]
